FAERS Safety Report 9865318 (Version 1)
Quarter: 2014Q1

REPORT INFORMATION
  Report Type: Spontaneous
  Country: None (occurrence: US)
  Receive Date: 20140203
  Receipt Date: 20140203
  Transmission Date: 20141002
  Serious: No
  Sender: FDA-Public Use
  Company Number: US-ALLERGAN-1301169US

PATIENT
  Age: 71 Year
  Sex: Female

DRUGS (2)
  1. RESTASIS [Suspect]
     Indication: DRY EYE
     Dosage: 2 GTT, BID
     Route: 047
     Dates: start: 2010
  2. REFRESH PLUS SENSITIVE [Concomitant]
     Indication: DRY EYE

REACTIONS (4)
  - Instillation site pain [Unknown]
  - Instillation site pain [Unknown]
  - Lacrimation increased [Unknown]
  - Vision blurred [Unknown]
